FAERS Safety Report 22005160 (Version 1)
Quarter: 2023Q1

REPORT INFORMATION
  Report Type: Spontaneous
  Country: US (occurrence: US)
  Receive Date: 20230217
  Receipt Date: 20230217
  Transmission Date: 20230418
  Serious: Yes (Other)
  Sender: FDA-Public Use
  Company Number: US-Shilpa Medicare Limited-SML-US-2023-00179

PATIENT
  Age: 87 Year
  Sex: Female

DRUGS (2)
  1. BUSULFAN [Suspect]
     Active Substance: BUSULFAN
     Indication: Age-related macular degeneration
     Route: 048
  2. BUSULFAN [Suspect]
     Active Substance: BUSULFAN
     Indication: Myeloproliferative neoplasm

REACTIONS (1)
  - Off label use [Unknown]
